FAERS Safety Report 17960231 (Version 1)
Quarter: 2020Q2

REPORT INFORMATION
  Report Type: Report from Study
  Country: None (occurrence: US)
  Receive Date: 20200630
  Receipt Date: 20200630
  Transmission Date: 20200714
  Serious: No
  Sender: FDA-Public Use
  Company Number: US-BIOVITRUM-2019US2160

PATIENT
  Sex: Male

DRUGS (14)
  1. LEVOTHYROXINE. [Concomitant]
     Active Substance: LEVOTHYROXINE
  2. KINERET [Suspect]
     Active Substance: ANAKINRA
     Route: 058
     Dates: start: 20190703
  3. ELIQUIS [Concomitant]
     Active Substance: APIXABAN
  4. ZINC. [Concomitant]
     Active Substance: ZINC
  5. VITAMIN B2 [Concomitant]
     Active Substance: RIBOFLAVIN
  6. VITAMINS [Concomitant]
     Active Substance: VITAMINS
  7. EPOGEN [Concomitant]
     Active Substance: ERYTHROPOIETIN
  8. GABAPENTIN. [Concomitant]
     Active Substance: GABAPENTIN
  9. CALCITRON [Concomitant]
     Active Substance: MINERALS\VITAMINS
  10. DEPAKOTE [Concomitant]
     Active Substance: DIVALPROEX SODIUM
  11. CARVEDILOL. [Concomitant]
     Active Substance: CARVEDILOL
  12. LIOTHYRONINE [Concomitant]
     Active Substance: LIOTHYRONINE
  13. PREDNISONE. [Concomitant]
     Active Substance: PREDNISONE
  14. LIPITOR [Concomitant]
     Active Substance: ATORVASTATIN CALCIUM

REACTIONS (2)
  - Headache [Not Recovered/Not Resolved]
  - Nausea [Unknown]
